FAERS Safety Report 9137327 (Version 1)
Quarter: 2013Q1

REPORT INFORMATION
  Report Type: Spontaneous
  Country: US (occurrence: US)
  Receive Date: 20130304
  Receipt Date: 20130304
  Transmission Date: 20140127
  Serious: Yes (Hospitalization)
  Sender: FDA-Public Use
  Company Number: US-BRISTOL-MYERS SQUIBB COMPANY-17431461

PATIENT
  Age: 52 Year
  Sex: Female

DRUGS (1)
  1. KOMBIGLYZE XR [Suspect]
     Dosage: 1 DF: 2 PILLS OF KOMBIGLYZE XR 2.5/1000

REACTIONS (1)
  - Pancreatitis [Unknown]
